FAERS Safety Report 17010679 (Version 1)
Quarter: 2019Q4

REPORT INFORMATION
  Report Type: Spontaneous
  Country: US (occurrence: US)
  Receive Date: 20191108
  Receipt Date: 20191108
  Transmission Date: 20200122
  Serious: Yes (Other)
  Sender: FDA-Public Use
  Company Number: US-SA-2018SA016560

PATIENT
  Age: 60 Year
  Sex: Female
  Weight: 99.79 kg

DRUGS (10)
  1. NOVOLIN N [Concomitant]
     Active Substance: INSULIN HUMAN
     Dosage: UNK UNK, UNK
     Dates: start: 2013
  2. TAXOTERE [Suspect]
     Active Substance: DOCETAXEL
     Dosage: 75 MG/M2,Q3W
     Route: 042
     Dates: start: 20140324, end: 20140324
  3. TAXOTERE [Suspect]
     Active Substance: DOCETAXEL
     Indication: BREAST CANCER FEMALE
     Dosage: 75 MG/M2,Q3W
     Route: 042
     Dates: start: 20140113, end: 20140113
  4. ACETYLSALICYLIC ACID [Concomitant]
     Active Substance: ASPIRIN
     Dosage: UNK UNK, UNK
  5. LISINOPRIL. [Concomitant]
     Active Substance: LISINOPRIL
     Dosage: UNK UNK, UNK
     Dates: start: 2013
  6. PRAVACHOL [Concomitant]
     Active Substance: PRAVASTATIN SODIUM
     Dosage: UNK UNK, UNK
     Dates: start: 2013
  7. VITAMINS NOS [Concomitant]
     Active Substance: VITAMINS
     Dosage: UNK UNK, UNK
  8. NEOSAR [Concomitant]
     Active Substance: CYCLOPHOSPHAMIDE
     Indication: BREAST CANCER FEMALE
     Dosage: 600 MG/M2, UNK
     Route: 065
  9. GABAPENTIN. [Concomitant]
     Active Substance: GABAPENTIN
     Dosage: UNK UNK, UNK
     Dates: start: 2013
  10. NOVOLIN R [Concomitant]
     Active Substance: INSULIN HUMAN
     Dosage: UNK UNK, UNK
     Dates: start: 2013

REACTIONS (1)
  - Alopecia [Recovering/Resolving]
